FAERS Safety Report 5632047-1 (Version None)
Quarter: 2008Q1

REPORT INFORMATION
  Report Type: 
  Country: None (occurrence: None)
  Receive Date: 20080220
  Receipt Date: 20080211
  Transmission Date: 20080703
  Serious: Yes (Hospitalization)
  Sender: FDA-Public Use
  Company Number: BR-BAYER-200811268LA

PATIENT
  Age: 17 Year
  Sex: Male

DRUGS (5)
  1. ASPIRIN [Suspect]
     Indication: SUICIDE ATTEMPT
     Route: 048
  2. IBUPROFEN [Suspect]
     Indication: SUICIDE ATTEMPT
     Route: 048
  3. ACETAMINOPHEN [Suspect]
     Indication: SUICIDE ATTEMPT
     Route: 048
  4. BENADRYL [Suspect]
     Indication: SUICIDE ATTEMPT
     Route: 048
  5. DIPIRONA [Suspect]
     Indication: SUICIDE ATTEMPT
     Route: 048

REACTIONS (4)
  - DIZZINESS [None]
  - LETHARGY [None]
  - SOMNOLENCE [None]
  - VOMITING [None]
